FAERS Safety Report 25691451 (Version 1)
Quarter: 2025Q3

REPORT INFORMATION
  Report Type: Spontaneous
  Country: US (occurrence: US)
  Receive Date: 20250818
  Receipt Date: 20250818
  Transmission Date: 20251021
  Serious: No
  Sender: XERIS PHARMACEUTICALS
  Company Number: US-BRIAN CONNER SVP QUALITY AND CHIEF COMPLIANCE OFFICER-2025XER00540

PATIENT

DRUGS (1)
  1. GVOKE [Suspect]
     Active Substance: GLUCAGON

REACTIONS (2)
  - Device delivery system issue [Unknown]
  - No adverse event [Unknown]
